FAERS Safety Report 9016850 (Version 1)
Quarter: 2013Q1

REPORT INFORMATION
  Report Type: Report from Study
  Country: TN (occurrence: TN)
  Receive Date: 20130117
  Receipt Date: 20130117
  Transmission Date: 20140127
  Serious: Yes (Death)
  Sender: FDA-Public Use
  Company Number: TN-SANOFI-AVENTIS-2013SA002750

PATIENT
  Age: 72 Year
  Sex: Male

DRUGS (5)
  1. PLAVIX [Suspect]
     Indication: MYOCARDIAL INFARCTION
     Route: 048
     Dates: start: 20120820, end: 20121213
  2. PLAVIX [Suspect]
     Indication: STENT PLACEMENT
     Route: 048
     Dates: start: 20120820, end: 20121213
  3. ASPIRIN [Concomitant]
     Route: 048
     Dates: end: 20121213
  4. TAHOR [Concomitant]
     Route: 048
     Dates: end: 20121213
  5. FAMOTIDINE [Concomitant]
     Route: 048
     Dates: end: 20121213

REACTIONS (2)
  - Chest pain [Fatal]
  - Suffocation feeling [Fatal]
